FAERS Safety Report 8488646-5 (Version None)
Quarter: 2012Q3

REPORT INFORMATION
  Report Type: 
  Country: None (occurrence: None)
  Receive Date: 20120705
  Receipt Date: 20120627
  Transmission Date: 20120928
  Serious: Yes (Hospitalization)
  Sender: FDA-Public Use
  Company Number: DE-UCBSA-057046

PATIENT
  Sex: Female

DRUGS (7)
  1. PREDNISOLONE [Concomitant]
     Indication: RHEUMATOID ARTHRITIS
     Route: 048
     Dates: start: 20080814
  2. CIMZIA [Suspect]
     Dates: start: 20101012, end: 20110501
  3. CALCIUM [Concomitant]
     Indication: PROPHYLAXIS
     Route: 048
     Dates: start: 20090226
  4. VIT D3 [Concomitant]
     Indication: PROPHYLAXIS
     Dosage: 1000 E DAILY
     Route: 048
     Dates: start: 20090226
  5. ARAVA [Concomitant]
     Indication: RHEUMATOID ARTHRITIS
     Route: 048
     Dates: start: 20090901
  6. MABTHERA [Concomitant]
     Dates: start: 20110705
  7. METAMIZOL [Concomitant]
     Indication: RHEUMATOID ARTHRITIS
     Dosage: DAILY DOSE: 1000 MG, 500 MG 2 TABLETS DAILY
     Route: 048
     Dates: start: 20090226

REACTIONS (1)
  - HEMIPARESIS [None]
